FAERS Safety Report 7650744-3 (Version None)
Quarter: 2011Q3

REPORT INFORMATION
  Report Type: 
  Country: None (occurrence: None)
  Receive Date: 20110802
  Receipt Date: 20110728
  Transmission Date: 20111222
  Serious: Yes (Other)
  Sender: FDA-Public Use
  Company Number: US-PFIZER INC-2011172970

PATIENT

DRUGS (1)
  1. AMIODARONE HCL [Suspect]
     Dosage: UNK

REACTIONS (1)
  - LOSS OF CONSCIOUSNESS [None]
